FAERS Safety Report 13064727 (Version 1)
Quarter: 2016Q4

REPORT INFORMATION
  Report Type: Spontaneous
  Country: FR (occurrence: FR)
  Receive Date: 20161227
  Receipt Date: 20161227
  Transmission Date: 20170207
  Serious: Yes (Hospitalization)
  Sender: FDA-Public Use
  Company Number: FR-PFIZER INC-2016585866

PATIENT
  Age: 48 Year
  Sex: Female

DRUGS (7)
  1. ENDOXAN /00021101/ [Suspect]
     Active Substance: CYCLOPHOSPHAMIDE
     Indication: ACUTE MYELOID LEUKAEMIA
     Dosage: 2820 MG, SINGLE
     Route: 042
     Dates: start: 20161006
  2. AMSALYO [Suspect]
     Active Substance: AMSACRINE
     Indication: ACUTE MYELOID LEUKAEMIA
     Dosage: 150 MG, 1X/DAY
     Route: 042
     Dates: start: 20160929, end: 20161002
  3. BUSILVEX [Suspect]
     Active Substance: BUSULFAN
     Indication: ACUTE MYELOID LEUKAEMIA
     Dosage: 38 MG, SINGLE
     Route: 042
     Dates: start: 20161007
  4. MYCOPHENOLATE MOFETIL. [Concomitant]
     Active Substance: MYCOPHENOLATE MOFETIL
     Indication: PROPHYLAXIS
  5. CYCLOSPORINE. [Concomitant]
     Active Substance: CYCLOSPORINE
     Indication: PROPHYLAXIS
  6. FLUDARABINE PHOSPHATE. [Suspect]
     Active Substance: FLUDARABINE PHOSPHATE
     Indication: ACUTE MYELOID LEUKAEMIA
     Dosage: 45 MG, 1X/DAY
     Route: 042
     Dates: start: 20160929, end: 20161002
  7. ARACYTINE [Suspect]
     Active Substance: CYTARABINE
     Indication: ACUTE MYELOID LEUKAEMIA
     Dosage: 3 G, UNK
     Route: 042
     Dates: start: 20160929, end: 20161002

REACTIONS (6)
  - Left ventricular failure [Recovered/Resolved]
  - Burkholderia cepacia complex infection [Not Recovered/Not Resolved]
  - Bacteraemia [Recovered/Resolved]
  - Human herpesvirus 6 infection [Unknown]
  - Pneumonia bacterial [Recovered/Resolved with Sequelae]
  - Cardiomyopathy [Recovered/Resolved with Sequelae]

NARRATIVE: CASE EVENT DATE: 201610
